FAERS Safety Report 20423143 (Version 3)
Quarter: 2022Q1

REPORT INFORMATION
  Report Type: Spontaneous
  Country: FR (occurrence: FR)
  Receive Date: 20220203
  Receipt Date: 20220308
  Transmission Date: 20220423
  Serious: Yes (Hospitalization, Other)
  Sender: FDA-Public Use
  Company Number: FR-ORGANON-O2201FRA002335

PATIENT
  Age: 75 Year
  Sex: Male
  Weight: 97 kg

DRUGS (2)
  1. AERIUS (DESLORATADINE) [Suspect]
     Active Substance: DESLORATADINE
     Dosage: UNK
     Route: 048
  2. CASODEX [Suspect]
     Active Substance: BICALUTAMIDE
     Dosage: UNK

REACTIONS (6)
  - Syncope [Recovered/Resolved]
  - Torsade de pointes [Unknown]
  - Electrocardiogram QT prolonged [Unknown]
  - Cardiac pacemaker insertion [Unknown]
  - Nodal arrhythmia [Unknown]
  - Malaise [Unknown]

NARRATIVE: CASE EVENT DATE: 20210702
